FAERS Safety Report 4902072-4 (Version None)
Quarter: 2006Q1

REPORT INFORMATION
  Report Type: 
  Country: None (occurrence: None)
  Receive Date: 20060206
  Receipt Date: 20051122
  Transmission Date: 20060701
  Serious: Yes (Hospitalization)
  Sender: FDA-Public Use
  Company Number: 2005JP002247

PATIENT
  Age: 37 Year
  Sex: Male
  Weight: 74 kg

DRUGS (8)
  1. CEFAZOLIN [Suspect]
     Indication: PROPHYLAXIS
     Dosage: 1G TWICE PER DAY
     Route: 042
     Dates: start: 20051027, end: 20051101
  2. XYLOCAINE [Concomitant]
     Dates: start: 20051027, end: 20051027
  3. ISOSORBIDE DINITRATE [Concomitant]
  4. HEPARIN [Concomitant]
  5. SOLMALT [Concomitant]
  6. ATROPINE [Concomitant]
     Dates: start: 20051027, end: 20051027
  7. ATARAX [Concomitant]
     Dates: start: 20051027, end: 20051027
  8. HORIZON [Concomitant]
     Dates: start: 20051027, end: 20051027

REACTIONS (4)
  - ALANINE AMINOTRANSFERASE INCREASED [None]
  - ASPARTATE AMINOTRANSFERASE INCREASED [None]
  - BLOOD LACTATE DEHYDROGENASE DECREASED [None]
  - HEPATIC FUNCTION ABNORMAL [None]
